FAERS Safety Report 15554687 (Version 2)
Quarter: 2018Q4

REPORT INFORMATION
  Report Type: Spontaneous
  Country: US (occurrence: US)
  Receive Date: 20181026
  Receipt Date: 20181030
  Transmission Date: 20190205
  Serious: Yes (Other)
  Sender: FDA-Public Use
  Company Number: US-PFIZER INC-2018426082

PATIENT
  Age: 76 Year
  Sex: Male
  Weight: 53.61 kg

DRUGS (1)
  1. VFEND [Suspect]
     Active Substance: VORICONAZOLE
     Indication: BRONCHOPULMONARY ASPERGILLOSIS
     Dosage: 200 MG, 2X/DAY
     Route: 048

REACTIONS (6)
  - Visual impairment [Recovering/Resolving]
  - Sleep terror [Not Recovered/Not Resolved]
  - Abnormal dreams [Not Recovered/Not Resolved]
  - Nightmare [Unknown]
  - Hallucination [Not Recovered/Not Resolved]
  - Poor quality sleep [Unknown]
